FAERS Safety Report 10287744 (Version 2)
Quarter: 2014Q1

REPORT INFORMATION
  Report Type: Spontaneous
  Country: US (occurrence: None)
  Receive Date: 20120817
  Receipt Date: 20130815
  Transmission Date: 20141002
  Serious: Yes (Hospitalization, Other)
  Sender: FDA-Public Use
  Company Number: ADR-2012-00636

PATIENT
  Sex: Male

DRUGS (2)
  1. LIORESAL INTRATHECAL(BACLOFEN INJECTION) 2000 MCG/ML [Suspect]
     Indication: MUSCLE SPASTICITY
  2. LIORESAL INTRATHECAL(BACLOFEN INJECTION) 2000 MCG/ML [Suspect]
     Indication: MULTIPLE SCLEROSIS

REACTIONS (3)
  - Drug withdrawal syndrome [None]
  - Underdose [None]
  - Muscle rigidity [None]
